FAERS Safety Report 5179245-1 (Version None)
Quarter: 2006Q4

REPORT INFORMATION
  Report Type: 
  Country: None (occurrence: None)
  Receive Date: 20061211
  Receipt Date: 20061127
  Transmission Date: 20070319
  Serious: Yes (Hospitalization)
  Sender: FDA-Public Use
  Company Number: 236772K06USA

PATIENT
  Age: 48 Year
  Sex: Male

DRUGS (2)
  1. REBIF [Suspect]
     Indication: MULTIPLE SCLEROSIS
     Dosage: 44 MCG, 3 IN 1 WEEKS, SUBCUTANEOUS
     Route: 058
     Dates: start: 20050329, end: 20050601
  2. AZATHIOPRINE [Suspect]
     Dosage: 25 MG 1 IN 1 DAYS ORAL
     Route: 048

REACTIONS (3)
  - HEPATITIS [None]
  - PANCREATITIS [None]
  - PANCYTOPENIA [None]
